FAERS Safety Report 6636379-X (Version None)
Quarter: 2010Q1

REPORT INFORMATION
  Report Type: 
  Country: None (occurrence: None)
  Receive Date: 20100311
  Receipt Date: 20100228
  Transmission Date: 20100710
  Serious: Yes (Hospitalization)
  Sender: FDA-Public Use
  Company Number: 232152J10USA

PATIENT
  Age: 62 Year
  Sex: Female
  Weight: 82 kg

DRUGS (5)
  1. REBIF [Suspect]
     Indication: MULTIPLE SCLEROSIS
     Dosage: 44 MCG, 3 IN 1 WEEKS, SUBCUTANEOUS
     Route: 058
     Dates: start: 20081217, end: 20100223
  2. CLONIDINE [Concomitant]
  3. PLAVIX [Concomitant]
  4. LABETALOL HCL [Concomitant]
  5. LISINOPRIL [Concomitant]

REACTIONS (5)
  - BACK PAIN [None]
  - CYSTITIS [None]
  - ENTEROCOLITIS BACTERIAL [None]
  - KIDNEY INFECTION [None]
  - WHITE BLOOD CELL COUNT INCREASED [None]
